FAERS Safety Report 17660691 (Version 1)
Quarter: 2020Q2

REPORT INFORMATION
  Report Type: Spontaneous
  Country: US (occurrence: US)
  Receive Date: 20200410
  Receipt Date: 20200410
  Transmission Date: 20200713
  Serious: No
  Sender: FDA-Public Use
  Company Number: None

PATIENT
  Age: 32 Year
  Sex: Female

DRUGS (1)
  1. SPRINTEC [Suspect]
     Active Substance: ETHINYL ESTRADIOL\NORGESTIMATE
     Indication: ENDOMETRIOSIS
     Route: 048
     Dates: start: 20180401, end: 20180630

REACTIONS (9)
  - Renal pain [None]
  - Pain of skin [None]
  - Feeling hot [None]
  - Emotional disorder [None]
  - Anger [None]
  - Crying [None]
  - Aggression [None]
  - Mood swings [None]
  - Insomnia [None]

NARRATIVE: CASE EVENT DATE: 20180527
